FAERS Safety Report 14221473 (Version 2)
Quarter: 2019Q1

REPORT INFORMATION
  Report Type: Spontaneous
  Country: US (occurrence: US)
  Receive Date: 20171124
  Receipt Date: 20190215
  Transmission Date: 20190417
  Serious: Yes (Other)
  Sender: FDA-Public Use
  Company Number: US-ALLERGAN-1760315US

PATIENT
  Age: 82 Year
  Sex: Female
  Weight: 68.95 kg

DRUGS (7)
  1. FETZIMA [Suspect]
     Active Substance: LEVOMILNACIPRAN HYDROCHLORIDE
     Indication: DEPRESSION
     Dosage: 20 MG, QD AT 2:00 PM
     Route: 048
     Dates: start: 20171013
  2. EFFEXOR [Concomitant]
     Active Substance: VENLAFAXINE HYDROCHLORIDE
     Indication: DEPRESSION
     Dosage: 150 MG, QD
     Route: 048
     Dates: start: 2000
  3. FETZIMA [Suspect]
     Active Substance: LEVOMILNACIPRAN HYDROCHLORIDE
     Indication: ANXIETY
  4. XANAX [Suspect]
     Active Substance: ALPRAZOLAM
     Indication: ANXIETY DISORDER
     Dosage: 0.5 MG, TID
     Route: 048
     Dates: end: 20171130
  5. ALPRAZOLAM. [Suspect]
     Active Substance: ALPRAZOLAM
     Dosage: 0.5 MG, BID; IN THE MORNING AND AT 2 PM
     Route: 048
     Dates: start: 20171130
  6. DEPLIN [Concomitant]
     Active Substance: LEVOMEFOLATE CALCIUM
     Indication: FOLATE DEFICIENCY
     Dosage: 15 MG, QAM
     Route: 048
     Dates: start: 20171028
  7. ALPRAZOLAM. [Suspect]
     Active Substance: ALPRAZOLAM
     Indication: ANXIETY DISORDER
     Dosage: 1 MG, QHS; AROUND 9 PM
     Route: 048
     Dates: start: 20171130

REACTIONS (13)
  - Depression [Unknown]
  - Head injury [Unknown]
  - Cerebral haemorrhage [Unknown]
  - Headache [Not Recovered/Not Resolved]
  - Therapeutic response unexpected [Unknown]
  - Somnolence [Unknown]
  - Fall [Unknown]
  - Sleep disorder [Unknown]
  - Off label use [Unknown]
  - Anxiety [Unknown]
  - Palpitations [Unknown]
  - Concussion [Unknown]
  - Tremor [Unknown]

NARRATIVE: CASE EVENT DATE: 20171028
